FAERS Safety Report 6303965-6 (Version None)
Quarter: 2009Q3

REPORT INFORMATION
  Report Type: 
  Country: None (occurrence: None)
  Receive Date: 20090810
  Receipt Date: 20090808
  Transmission Date: 20100115
  Serious: Yes (Other)
  Sender: FDA-Public Use
  Company Number: US-PFIZER INC-2009232761

PATIENT

DRUGS (1)
  1. SUTENT [Suspect]
     Dosage: 50 MG,

REACTIONS (2)
  - GASTRITIS EROSIVE [None]
  - OESOPHAGITIS ULCERATIVE [None]
